FAERS Safety Report 4421988-9 (Version None)
Quarter: 2004Q3

REPORT INFORMATION
  Report Type: 
  Country: None (occurrence: None)
  Receive Date: 20040805
  Receipt Date: 20040728
  Transmission Date: 20050211
  Serious: Yes (Other)
  Sender: FDA-Public Use
  Company Number: 163-20785-04070639

PATIENT
  Age: 68 Year
  Sex: Male
  Weight: 82 kg

DRUGS (6)
  1. THALOMID [Suspect]
     Indication: NON-SMALL CELL LUNG CANCER
     Dosage: 200 MG, QD, ORAL
     Route: 048
     Dates: start: 20040707, end: 20040718
  2. CARBOPLATIN [Suspect]
     Indication: NON-SMALL CELL LUNG CANCER
     Dosage: 521 MG, Q21 DAYS, INTRAVENOUS
     Route: 042
     Dates: start: 20040707, end: 20040707
  3. PACLITAXEL [Suspect]
     Indication: NON-SMALL CELL LUNG CANCER
     Dosage: 455 MG, Q21DAYS, INTRAVENOUS
     Route: 042
     Dates: start: 20040707, end: 20040707
  4. ACTOS [Concomitant]
  5. FLOMAX [Concomitant]
  6. GLUCTROL (GLIPIZIDE) [Concomitant]

REACTIONS (3)
  - DRUG TOXICITY [None]
  - DYSPNOEA AT REST [None]
  - HYPOXIA [None]
